FAERS Safety Report 5455032-1 (Version None)
Quarter: 2007Q3

REPORT INFORMATION
  Report Type: 
  Country: None (occurrence: None)
  Receive Date: 20070913
  Receipt Date: 20070903
  Transmission Date: 20080115
  Serious: Yes (Death, Hospitalization)
  Sender: FDA-Public Use
  Company Number: 230001L07TWN

PATIENT
  Age: 33 Year
  Sex: Male

DRUGS (4)
  1. REBIF [Suspect]
     Indication: RELAPSING-REMITTING MULTIPLE SCLEROSIS
     Dates: start: 20040301
  2. METHYLPREDNISOLONE [Suspect]
     Dosage: 1 IN 6 HR
  3. AZATHIOPRINE [Suspect]
     Dosage: 2 IN 1 DAYS
     Dates: start: 20050401, end: 20050801
  4. MYCOPHENOLATE MOFETIL [Suspect]
     Dosage: 2 IN 1 DAYS
     Dates: start: 20050806, end: 20050801

REACTIONS (10)
  - CENTRAL NERVOUS SYSTEM LYMPHOMA [None]
  - CONVULSION [None]
  - DEPRESSED LEVEL OF CONSCIOUSNESS [None]
  - DYSPHAGIA [None]
  - HEMIPLEGIA [None]
  - IMMUNOSUPPRESSION [None]
  - NO THERAPEUTIC RESPONSE [None]
  - RESPIRATORY FAILURE [None]
  - SEPSIS [None]
  - TACHYPNOEA [None]
